FAERS Safety Report 25384926 (Version 1)
Quarter: 2025Q2

REPORT INFORMATION
  Report Type: Spontaneous
  Country: US (occurrence: None)
  Receive Date: 20250530
  Receipt Date: 20250530
  Transmission Date: 20250716
  Serious: Yes (Hospitalization)
  Sender: FDA-CTU
  Company Number: None

PATIENT
  Sex: Male

DRUGS (11)
  1. LENALIDOMIDE [Suspect]
     Active Substance: LENALIDOMIDE
     Dosage: FREQUENCY : DAILY;?
     Dates: start: 20220614
  2. ALLOPURINOL [Concomitant]
     Active Substance: ALLOPURINOL
  3. ASPIRIN CHW [Concomitant]
  4. ASPIRIN LOW CHW [Concomitant]
  5. ATORVASTATIN [Concomitant]
     Active Substance: ATORVASTATIN
  6. DEXAMETHASON TAB [Concomitant]
  7. ELIOUIS TAB [Concomitant]
  8. FUROSEMIDE TAB [Concomitant]
  9. METOPROL SUC TAB [Concomitant]
  10. PREDNISOLONE ACETATE [Concomitant]
     Active Substance: PREDNISOLONE ACETATE
  11. REVLIMID CAP [Concomitant]

REACTIONS (1)
  - Blood potassium decreased [None]
